FAERS Safety Report 7970596-1 (Version None)
Quarter: 2011Q4

REPORT INFORMATION
  Report Type: 
  Country: None (occurrence: None)
  Receive Date: 20111212
  Receipt Date: 20111202
  Transmission Date: 20120403
  Serious: Yes (Death)
  Sender: FDA-Public Use
  Company Number: IE-MEDIMMUNE-MEDI-0014072

PATIENT
  Sex: Female
  Weight: 3.22 kg

DRUGS (2)
  1. HIGH ENERGY FEEDS (UNSPECIFIED) [Concomitant]
  2. SYNAGIS [Suspect]
     Route: 030
     Dates: start: 20111108, end: 20111108

REACTIONS (1)
  - DEATH [None]
